FAERS Safety Report 7514190-5 (Version None)
Quarter: 2011Q2

REPORT INFORMATION
  Report Type: 
  Country: None (occurrence: None)
  Receive Date: 20110531
  Receipt Date: 20110517
  Transmission Date: 20111010
  Serious: Yes (Hospitalization)
  Sender: FDA-Public Use
  Company Number: DE-GENENTECH-319466

PATIENT
  Sex: Female
  Weight: 66 kg

DRUGS (9)
  1. VINCRISTINE [Suspect]
     Indication: B-CELL LYMPHOMA
     Dosage: 2 MG, UNK
     Route: 042
     Dates: start: 20101001
  2. DOXORUBICIN HCL [Suspect]
     Indication: B-CELL LYMPHOMA
     Dosage: 82 MG, UNK
     Route: 042
     Dates: start: 20101001
  3. PANTOPRAZOLE [Concomitant]
     Indication: PRODUCT USED FOR UNKNOWN INDICATION
     Dosage: 40 MG, UNK
     Dates: start: 20100927
  4. RITUXIMAB [Suspect]
     Indication: B-CELL LYMPHOMA
     Dosage: 611 MG, UNK
     Route: 042
     Dates: start: 20100930
  5. COTRIM [Concomitant]
     Indication: PRODUCT USED FOR UNKNOWN INDICATION
     Dosage: 1920 MG, 2/WEEK
     Dates: start: 20110517
  6. CYCLOPHOSPHAMIDE [Suspect]
     Indication: B-CELL LYMPHOMA
     Dosage: 1223 MG, UNK
     Route: 042
     Dates: start: 20101001
  7. MESNA [Suspect]
     Indication: B-CELL LYMPHOMA
     Dosage: 1200 MG, UNK
     Route: 042
     Dates: start: 20101001
  8. PREDNISONE [Suspect]
     Indication: B-CELL LYMPHOMA
     Dosage: 100 MG, UNK
     Route: 042
     Dates: start: 20101001
  9. BROMAZEPAM [Concomitant]
     Indication: PRODUCT USED FOR UNKNOWN INDICATION
     Dosage: UNK

REACTIONS (1)
  - AXILLARY VEIN THROMBOSIS [None]
